FAERS Safety Report 7466155-X (Version None)
Quarter: 2011Q2

REPORT INFORMATION
  Report Type: 
  Country: None (occurrence: None)
  Receive Date: 20110509
  Receipt Date: 20101215
  Transmission Date: 20111010
  Serious: No
  Sender: FDA-Public Use
  Company Number: US-SANOFI-AVENTIS-2010SA077065

PATIENT
  Age: 83 Year
  Sex: Female
  Weight: 70 kg

DRUGS (2)
  1. APIDRA [Suspect]
     Dosage: 10/12 UNITS DAILY.
     Route: 058
     Dates: start: 20060101
  2. OPTICLICK [Suspect]
     Dosage: PRODUCT START DATE: 4 YEARS
     Dates: start: 20060101

REACTIONS (2)
  - VISION BLURRED [None]
  - RETINAL DISORDER [None]
